FAERS Safety Report 15365250 (Version 2)
Quarter: 2018Q3

REPORT INFORMATION
  Report Type: Spontaneous
  Country: JP (occurrence: JP)
  Receive Date: 20180910
  Receipt Date: 20180912
  Transmission Date: 20181010
  Serious: Yes (Death, Hospitalization, Other)
  Sender: FDA-Public Use
  Company Number: JP-ROCHE-1406211

PATIENT
  Age: 64 Year
  Sex: Female
  Weight: 46 kg

DRUGS (9)
  1. HERCEPTIN [Suspect]
     Active Substance: TRASTUZUMAB
     Indication: HER-2 POSITIVE BREAST CANCER
     Route: 041
     Dates: start: 20140305, end: 20140305
  2. EPIRUBICIN HYDROCHLORIDE. [Concomitant]
     Active Substance: EPIRUBICIN HYDROCHLORIDE
     Indication: HER-2 POSITIVE BREAST CANCER
     Route: 065
     Dates: start: 201312
  3. HERCEPTIN [Suspect]
     Active Substance: TRASTUZUMAB
     Route: 041
  4. PERJETA [Suspect]
     Active Substance: PERTUZUMAB
     Route: 041
  5. ABRAXANE [Concomitant]
     Active Substance: PACLITAXEL
     Indication: HER-2 POSITIVE BREAST CANCER
     Route: 042
     Dates: start: 201306
  6. ENDOXAN [Concomitant]
     Active Substance: CYCLOPHOSPHAMIDE
     Indication: HER-2 POSITIVE BREAST CANCER
     Route: 065
     Dates: start: 201312
  7. PERJETA [Suspect]
     Active Substance: PERTUZUMAB
     Indication: HER-2 POSITIVE BREAST CANCER
     Dosage: 420 MG/14 ML
     Route: 041
     Dates: start: 20140305, end: 20140305
  8. DOCETAXEL. [Concomitant]
     Active Substance: DOCETAXEL
     Indication: HER-2 POSITIVE BREAST CANCER
     Dosage: DOSAGE IS UNCERTAIN.
     Route: 041
     Dates: start: 20140305
  9. DOCETAXEL. [Concomitant]
     Active Substance: DOCETAXEL
     Dosage: DOSAGE IS UNCERTAIN.
     Route: 041

REACTIONS (6)
  - Metastases to lung [Not Recovered/Not Resolved]
  - Cardiac failure [Unknown]
  - Breast cancer [Fatal]
  - Metastases to liver [Not Recovered/Not Resolved]
  - Hypoaesthesia [Unknown]
  - Acute left ventricular failure [Recovering/Resolving]

NARRATIVE: CASE EVENT DATE: 20140318
